FAERS Safety Report 18851841 (Version 2)
Quarter: 2021Q1

REPORT INFORMATION
  Report Type: Report from Study
  Country: US (occurrence: US)
  Receive Date: 20210205
  Receipt Date: 20210319
  Transmission Date: 20210420
  Serious: No
  Sender: FDA-Public Use
  Company Number: US-DSJP-DSU-2021-103439

PATIENT
  Sex: Female

DRUGS (1)
  1. PEXIDARTINIB [Suspect]
     Active Substance: PEXIDARTINIB
     Indication: GIANT CELL TUMOUR OF TENDON SHEATH
     Dosage: 200MG EVERY AM AND 400MG EVERY PM
     Route: 048
     Dates: start: 20210107

REACTIONS (4)
  - Pain in extremity [Recovered/Resolved]
  - Hair colour changes [Recovered/Resolved]
  - Product dose omission issue [Unknown]
  - Blood test abnormal [Not Recovered/Not Resolved]
